FAERS Safety Report 9954227 (Version 2)
Quarter: 2014Q1

REPORT INFORMATION
  Report Type: Report from Study
  Country: US (occurrence: US)
  Receive Date: 20140304
  Receipt Date: 20140304
  Transmission Date: 20141002
  Serious: Yes (Hospitalization)
  Sender: FDA-Public Use
  Company Number: US-ABBVIE-13P-163-1064764-00

PATIENT
  Age: 26 Year
  Sex: Female

DRUGS (6)
  1. HUMIRA [Suspect]
     Indication: CROHN^S DISEASE
     Dates: start: 20130206
  2. MARINOL [Concomitant]
     Indication: PAIN
     Dosage: AS NEEDED
  3. PROTONIX [Concomitant]
     Indication: CROHN^S DISEASE
  4. BENTYL [Concomitant]
     Indication: CROHN^S DISEASE
  5. VITAMIN D NOS [Concomitant]
     Indication: PRODUCT USED FOR UNKNOWN INDICATION
  6. B12 [Concomitant]
     Indication: PRODUCT USED FOR UNKNOWN INDICATION
     Dosage: WEEKLY
     Route: 050

REACTIONS (8)
  - Clostridium difficile infection [Recovering/Resolving]
  - Drug dose omission [Unknown]
  - Malaise [Unknown]
  - Cold sweat [Unknown]
  - Diarrhoea [Unknown]
  - Diarrhoea haemorrhagic [Unknown]
  - Abnormal faeces [Unknown]
  - Abdominal pain [Unknown]
